FAERS Safety Report 8453124-6 (Version None)
Quarter: 2012Q2

REPORT INFORMATION
  Report Type: 
  Country: None (occurrence: None)
  Receive Date: 20120620
  Receipt Date: 20120508
  Transmission Date: 20120825
  Serious: No
  Sender: FDA-Public Use
  Company Number: US-VERTEX PHARMACEUTICALS INC.-AE-2012-006667

PATIENT
  Sex: Male
  Weight: 78.542 kg

DRUGS (10)
  1. DIGOXIN [Concomitant]
     Route: 048
  2. POTASSIUM CHLORIDE [Concomitant]
     Route: 048
  3. MULTI-VITAMIN [Concomitant]
     Route: 048
  4. RIBAVIRIN [Concomitant]
     Indication: HEPATITIS C
     Route: 048
     Dates: start: 20120225
  5. OMEPRAZOLE [Concomitant]
     Route: 048
  6. PEGASYS [Concomitant]
     Indication: HEPATITIS C
     Route: 058
     Dates: start: 20120224
  7. FUROSEMIDE [Concomitant]
     Route: 048
  8. INCIVEK [Suspect]
     Indication: HEPATITIS C
     Route: 048
     Dates: start: 20120225
  9. AMLODIPINE [Concomitant]
     Route: 048
  10. VASOTEC [Concomitant]
     Route: 048

REACTIONS (3)
  - DRUG DOSE OMISSION [None]
  - ADVERSE EVENT [None]
  - DIARRHOEA [None]
